FAERS Safety Report 21057116 (Version 1)
Quarter: 2022Q3

REPORT INFORMATION
  Report Type: Spontaneous
  Country: BH (occurrence: BH)
  Receive Date: 20220708
  Receipt Date: 20220708
  Transmission Date: 20221027
  Serious: Yes (Hospitalization, Other)
  Sender: FDA-Public Use
  Company Number: BH-MLMSERVICE-20210726-3016011-1

PATIENT
  Age: 52 Year
  Sex: Female

DRUGS (19)
  1. OMEPRAZOLE [Suspect]
     Active Substance: OMEPRAZOLE
     Indication: Product used for unknown indication
     Dosage: 20 MG
  2. OMEPRAZOLE [Suspect]
     Active Substance: OMEPRAZOLE
     Dosage: OMEPRAZOLE 20 MG INTRAVENOUSLY TWO TIMES PER DAY/20 MG PER ORAL TWO TIMES PER DAY ACCORDING TO PERMI
  3. ACETAMINOPHEN [Suspect]
     Active Substance: ACETAMINOPHEN
     Indication: Product used for unknown indication
     Dosage: PARACETAMOL 1000 MG PER ORAL OR INTRAVENOUSLY EVERY 6 HOURS AS NEEDED
  4. ACETAMINOPHEN [Suspect]
     Active Substance: ACETAMINOPHEN
     Dosage: PARACETAMOL 1000 MG PER ORAL OR INTRAVENOUSLY EVERY 6 HOURS AS NEEDED
  5. DEXAMETHASONE [Suspect]
     Active Substance: DEXAMETHASONE
     Indication: Steroid therapy
  6. DEXAMETHASONE [Suspect]
     Active Substance: DEXAMETHASONE
  7. CEFTRIAXONE [Suspect]
     Active Substance: CEFTRIAXONE
  8. DOXYCYCLINE [Suspect]
     Active Substance: DOXYCYCLINE
  9. METOCLOPRAMIDE [Concomitant]
     Active Substance: METOCLOPRAMIDE
     Dosage: METOCLOPRAMIDE 10 MG INTRAVENOUSLY EVERY 4 HOURS AS NEEDED LIMITED USE
  10. IPRATROPIUM BROMIDE [Concomitant]
     Active Substance: IPRATROPIUM BROMIDE
     Dosage: NEBULISED IPRATROPIUM BROMIDE 250 ?G EVERY 8 HOURS
  11. ZINC GLUCONATE [Concomitant]
     Active Substance: ZINC GLUCONATE
  12. CHOLECALCIFEROL [Concomitant]
     Active Substance: CHOLECALCIFEROL
  13. ALBUTEROL [Concomitant]
     Active Substance: ALBUTEROL
     Dosage: NEBULISED SALBUTAMOL
  14. OXYGEN [Concomitant]
     Active Substance: OXYGEN
     Dosage: OXYGEN THROUGH NASAL CANNULA AND FACE MASK.
  15. FLUTICASONE FUROATE\VILANTEROL TRIFENATATE [Concomitant]
     Active Substance: FLUTICASONE FUROATE\VILANTEROL TRIFENATATE
     Dosage: FLUTICASONE FUROATE/VILANTEROL 1 PUFF ONCE DAILY FROM SECOND DAY OF ADMISSION ONWARDS
  16. AZITHROMYCIN [Concomitant]
     Active Substance: AZITHROMYCIN
  17. ENOXAPARIN [Concomitant]
     Active Substance: ENOXAPARIN
     Dosage: 4000?12000 IU SUBCUTANEOUSLY TWO TIMES PER DAY THROUGHOUT HOSPITAL STAY
  18. METHYLPREDNISOLONE [Concomitant]
     Active Substance: METHYLPREDNISOLONE
     Indication: Steroid therapy
     Dosage: 40?60 MG INTRAVENOUSLY EVERY 8 HOURS FOR 8 DAYS
  19. PANTOPRAZOLE [Concomitant]
     Active Substance: PANTOPRAZOLE

REACTIONS (1)
  - Pancreatitis acute [Recovering/Resolving]
